FAERS Safety Report 12292934 (Version 1)
Quarter: 2016Q2

REPORT INFORMATION
  Report Type: Report from Study
  Country: US (occurrence: US)
  Receive Date: 20160421
  Receipt Date: 20160421
  Transmission Date: 20160815
  Serious: No
  Sender: FDA-Public Use
  Company Number: US-AMGEN-USASL2016044041

PATIENT
  Age: 78 Year
  Sex: Female

DRUGS (1)
  1. REPATHA [Suspect]
     Active Substance: EVOLOCUMAB
     Indication: HYPERCHOLESTEROLAEMIA
     Dosage: 140 ML, TWICE MONTHLY
     Route: 065
     Dates: end: 201603

REACTIONS (5)
  - Muscle spasms [Unknown]
  - Abdominal pain upper [Unknown]
  - Injection site pain [Unknown]
  - Hypoaesthesia [Unknown]
  - Pain [Recovered/Resolved]
